FAERS Safety Report 21882079 (Version 1)
Quarter: 2023Q1

REPORT INFORMATION
  Report Type: Spontaneous
  Country: US (occurrence: US)
  Receive Date: 20230119
  Receipt Date: 20230119
  Transmission Date: 20230417
  Serious: Yes (Other)
  Sender: FDA-Public Use
  Company Number: US-drreddys-LIT/USA/23/0160102

PATIENT
  Age: 62 Year
  Sex: Male

DRUGS (20)
  1. TESTOSTERONE [Suspect]
     Active Substance: TESTOSTERONE
     Indication: Pneumonitis
     Dosage: FROM WEEK 1?8 AND WEEK 16?20
  2. TESTOSTERONE [Suspect]
     Active Substance: TESTOSTERONE
     Dosage: FROM WEEK 8?16
  3. MESTEROLONE [Suspect]
     Active Substance: MESTEROLONE
     Indication: Pneumonitis
     Dosage: FROM WEEK 1?8 AND WEEK 16?20
  4. STANOZOLOL [Suspect]
     Active Substance: STANOZOLOL
     Indication: Pneumonitis
     Dosage: FROM WEEK 1?8 AND WEEK 16?20
  5. ANASTROZOLE [Suspect]
     Active Substance: ANASTROZOLE
     Indication: Pneumonitis
     Dosage: FROM WEEK 1?16
  6. CHLORODEHYDROMETHYLTESTOSTERONE [Suspect]
     Active Substance: CHLORODEHYDROMETHYLTESTOSTERONE
     Indication: Pneumonitis
     Dosage: FROM WEEK 1?8
  7. SOMATROPIN [Suspect]
     Active Substance: SOMATROPIN
     Indication: Pneumonitis
     Dosage: WEEK 1?20
  8. NANDROLONE [Suspect]
     Active Substance: NANDROLONE
     Indication: Pneumonitis
     Dosage: FROM WEEK 8?16
  9. BOLDENONE [Suspect]
     Active Substance: BOLDENONE
     Indication: Pneumonitis
     Dosage: FROM WEEK 8?16
  10. METHANDROSTENOLONE [Suspect]
     Active Substance: METHANDROSTENOLONE
     Indication: Pneumonitis
     Dosage: FROM WEEK 8?16
  11. DROMOSTANOLONE [Suspect]
     Active Substance: DROMOSTANOLONE
     Indication: Pneumonitis
     Dosage: FROM WEEK 16?20
  12. OXANDROLONE [Suspect]
     Active Substance: OXANDROLONE
     Indication: Pneumonitis
     Dosage: FROM WEEK 16?20
  13. FLUOXYMESTERONE [Suspect]
     Active Substance: FLUOXYMESTERONE
     Indication: Pneumonitis
     Dosage: FROM WEEK 16?20
  14. CARBOPLATIN [Concomitant]
     Active Substance: CARBOPLATIN
     Indication: Non-small cell lung cancer
     Dosage: 6 CYCLES
  15. CARBOPLATIN [Concomitant]
     Active Substance: CARBOPLATIN
     Indication: Hepatic steatosis
     Dosage: 2 CYCLES
  16. PACLITAXEL [Concomitant]
     Active Substance: PACLITAXEL
     Indication: Non-small cell lung cancer
  17. PACLITAXEL [Concomitant]
     Active Substance: PACLITAXEL
     Indication: Hepatic steatosis
     Dosage: 2 CYCLES
  18. AZITHROMYCIN [Concomitant]
     Active Substance: AZITHROMYCIN
     Indication: Pneumonitis
  19. PREDNISONE [Concomitant]
     Active Substance: PREDNISONE
     Indication: Pneumonitis
     Dosage: 5 WEEK PREDNISONE TAPER WITH A STARTING DOSE OF 25 MG
  20. PREDNISONE [Concomitant]
     Active Substance: PREDNISONE

REACTIONS (2)
  - Intentional product misuse [Unknown]
  - Product use in unapproved indication [Unknown]
